FAERS Safety Report 5929103-7 (Version None)
Quarter: 2008Q4

REPORT INFORMATION
  Report Type: 
  Country: None (occurrence: None)
  Receive Date: 20081024
  Receipt Date: 20081016
  Transmission Date: 20090506
  Serious: Yes (Death, Hospitalization)
  Sender: FDA-Public Use
  Company Number: FR-TEVA-178311ISR

PATIENT
  Sex: Female

DRUGS (5)
  1. VINCRISTINE [Suspect]
     Indication: ACUTE LYMPHOCYTIC LEUKAEMIA
     Route: 042
     Dates: start: 20071201, end: 20071201
  2. ASPARAGINASE [Suspect]
     Indication: ACUTE LYMPHOCYTIC LEUKAEMIA
     Dosage: 10000 UI PER M2
     Route: 042
     Dates: start: 20071202, end: 20071202
  3. METHOTREXATE [Suspect]
     Indication: ACUTE LYMPHOCYTIC LEUKAEMIA
     Dosage: 3G PRE M2
     Route: 042
     Dates: start: 20071201, end: 20071201
  4. MERCAPTOPURINE [Suspect]
     Indication: ACUTE LYMPHOCYTIC LEUKAEMIA
     Dosage: 60 MG PER M2
     Route: 048
     Dates: start: 20071201, end: 20071206
  5. LEVONORGESTREL AND ETHINYL ESTRADIOL [Concomitant]
     Indication: ORAL CONTRACEPTION
     Route: 048

REACTIONS (4)
  - ABDOMINAL PAIN [None]
  - ANAPHYLACTIC SHOCK [None]
  - DYSPNOEA [None]
  - HYPOTENSION [None]
